FAERS Safety Report 7759584-8 (Version None)
Quarter: 2011Q3

REPORT INFORMATION
  Report Type: 
  Country: None (occurrence: None)
  Receive Date: 20110915
  Receipt Date: 20110902
  Transmission Date: 20111222
  Serious: Yes (Hospitalization)
  Sender: FDA-Public Use
  Company Number: 1000023778

PATIENT
  Age: 94 Year
  Sex: Female

DRUGS (5)
  1. IPERTEN (MANIDIPINE HYDROCHLORIDE) (MANIDIPINE HYDROCHLORIDE) [Concomitant]
  2. OLPREZIDE (OLMESARTAN, HYDROCHLOROTHIAZIDE) (OLMESARTAN, HYDROCHLOROTH [Concomitant]
  3. LUVION (CANRENOIC ACID) (CANRENOIC ACID) [Concomitant]
  4. NEBIVOLOL HCL [Suspect]
     Indication: HYPERTENSIVE HEART DISEASE
     Dosage: 5 MG (5 MG, 1 IN 1 D), ORAL
     Route: 048
     Dates: start: 20080401, end: 20110316
  5. CORDARONE [Suspect]
     Indication: HYPERTENSIVE HEART DISEASE
     Dosage: 100 MG (100 MG, 1 IN 1 D), ORAL
     Route: 048
     Dates: start: 20080401, end: 20110316

REACTIONS (4)
  - MALAISE [None]
  - DYSSTASIA [None]
  - BRADYCARDIA [None]
  - ASTHENIA [None]
